FAERS Safety Report 6495927-3 (Version None)
Quarter: 2009Q4

REPORT INFORMATION
  Report Type: 
  Country: None (occurrence: None)
  Receive Date: 20091214
  Receipt Date: 20090827
  Transmission Date: 20100525
  Serious: No
  Sender: FDA-Public Use
  Company Number: US-BRISTOL-MYERS SQUIBB COMPANY-14757942

PATIENT
  Age: 4 Decade
  Sex: Female

DRUGS (3)
  1. ABILIFY [Suspect]
     Indication: BIPOLAR DISORDER
     Dosage: STARTED AS 5MG THEN 10MG  15MG FOR 3 WEEKS   WILL RESTART AT 7.5 MG
     Route: 048
     Dates: end: 20090821
  2. BENADRYL [Concomitant]
  3. TRAZODONE HCL [Concomitant]

REACTIONS (1)
  - URINARY RETENTION [None]
